FAERS Safety Report 4481611-4 (Version None)
Quarter: 2004Q3

REPORT INFORMATION
  Report Type: 
  Country: None (occurrence: None)
  Receive Date: 20040921
  Receipt Date: 20040716
  Transmission Date: 20050211
  Serious: Yes (Other)
  Sender: FDA-Public Use
  Company Number: 163-20785-04070458(0)

PATIENT
  Age: 42 Year
  Sex: Male

DRUGS (3)
  1. THALOMID [Suspect]
     Indication: GLIOBLASTOMA MULTIFORME
     Dosage: 400 MG, DAILY, ORAL
     Route: 048
     Dates: start: 20030828, end: 20040621
  2. THALOMID [Suspect]
     Indication: GLIOBLASTOMA MULTIFORME
     Dosage: 400 MG, DAILY, ORAL
     Route: 048
     Dates: start: 20040621, end: 20040713
  3. CPT-III (IRINOTECAN) (SOLUTION) [Suspect]
     Indication: GLIOBLASTOMA MULTIFORME
     Dosage: 350MG/M2, EVERY 3 WEEKS, INTRAVENOUS
     Route: 042
     Dates: start: 20030828, end: 20040603

REACTIONS (7)
  - ASTHENIA [None]
  - DIFFICULTY IN WALKING [None]
  - HEADACHE [None]
  - LABORATORY TEST ABNORMAL [None]
  - NAUSEA [None]
  - PYREXIA [None]
  - VOMITING [None]
